FAERS Safety Report 9313606 (Version 2)
Quarter: 2014Q1

REPORT INFORMATION
  Report Type: Spontaneous
  Country: US (occurrence: US)
  Receive Date: 20130528
  Receipt Date: 20140129
  Transmission Date: 20141002
  Serious: Yes (Other)
  Sender: FDA-Public Use
  Company Number: US-B.I. PHARMACEUTICALS,INC./RIDGEFIELD-2013-BI-13993BP

PATIENT
  Sex: Female

DRUGS (1)
  1. COMBIVENT [Suspect]
     Indication: EMPHYSEMA
     Dosage: 1 PUF
     Route: 055
     Dates: start: 2003

REACTIONS (3)
  - Myocardial infarction [Unknown]
  - Mitral valve prolapse [Unknown]
  - Cardiac disorder [Unknown]
